FAERS Safety Report 5823230-0 (Version None)
Quarter: 2008Q3

REPORT INFORMATION
  Report Type: 
  Country: None (occurrence: None)
  Receive Date: 20080725
  Receipt Date: 20070904
  Transmission Date: 20090109
  Serious: No
  Sender: FDA-Public Use
  Company Number: A0676132A

PATIENT
  Age: 78 Year
  Sex: Female

DRUGS (15)
  1. DYAZIDE [Suspect]
     Indication: HYPERTENSION
     Dosage: 25MG PER DAY
     Route: 048
     Dates: start: 19870101
  2. ZANTAC [Suspect]
     Dosage: 150MG AS REQUIRED
     Route: 048
     Dates: start: 20010101
  3. XANAX [Concomitant]
  4. THEOPHYLLINE [Concomitant]
  5. POTASSIUM CHLORIDE [Concomitant]
  6. ARIMIDEX [Concomitant]
  7. COMBIVENT [Concomitant]
  8. CELEXA [Concomitant]
  9. CALCIUM D [Concomitant]
  10. COD LIVER OIL [Concomitant]
  11. VITAMIN E [Concomitant]
  12. TYLENOL [Concomitant]
  13. ANTIBIOTIC CREAM [Concomitant]
  14. HYDROCORTISONE [Concomitant]
  15. SOAP [Concomitant]

REACTIONS (2)
  - PRURITUS [None]
  - RASH [None]
